FAERS Safety Report 8973052 (Version 1)
Quarter: 2012Q4

REPORT INFORMATION
  Report Type: 
  Country: US (occurrence: US)
  Receive Date: 20121218
  Receipt Date: 20121218
  Transmission Date: 20130627
  Serious: No
  Sender: FDA-Public Use
  Company Number: US-BRISTOL-MYERS SQUIBB COMPANY-16975963

PATIENT
  Age: 65 Year
  Sex: Male

DRUGS (2)
  1. ABILIFY [Suspect]
     Indication: MAJOR DEPRESSION
     Dosage: 1df=5mg to 1 mg
     Route: 048
     Dates: start: 20111025
  2. ZOCOR [Concomitant]

REACTIONS (2)
  - Blood triglycerides increased [Unknown]
  - Weight increased [Unknown]
